FAERS Safety Report 8280374-4 (Version None)
Quarter: 2012Q2

REPORT INFORMATION
  Report Type: 
  Country: None (occurrence: None)
  Receive Date: 20120412
  Receipt Date: 20110519
  Transmission Date: 20120825
  Serious: No
  Sender: FDA-Public Use
  Company Number: US-ASTRAZENECA-2011SE30644

PATIENT
  Age: 82 Year
  Sex: Male
  Weight: 95.3 kg

DRUGS (7)
  1. NEXIUM [Suspect]
     Indication: GASTROOESOPHAGEAL REFLUX DISEASE
     Route: 048
     Dates: start: 20110517
  2. CITALOPRAM HYDROBROMIDE [Concomitant]
  3. INSULIN [Concomitant]
  4. GLIPIZIDE [Concomitant]
  5. TRICLOR [Concomitant]
  6. LOSARTAN POTASSIUM [Concomitant]
  7. LIPITOR [Concomitant]

REACTIONS (2)
  - GAIT DISTURBANCE [None]
  - MUSCULAR WEAKNESS [None]
